FAERS Safety Report 6611413-1 (Version None)
Quarter: 2010Q1

REPORT INFORMATION
  Report Type: 
  Country: None (occurrence: None)
  Receive Date: 20100218
  Receipt Date: 20091204
  Transmission Date: 20100710
  Serious: No
  Sender: FDA-Public Use
  Company Number: WAES 0912USA00980

PATIENT

DRUGS (3)
  1. ISENTRESS [Suspect]
     Indication: HIV INFECTION
     Dosage: PO
     Route: 048
  2. REYATAZ [Concomitant]
  3. TRUVADA [Concomitant]

REACTIONS (1)
  - DEPRESSION [None]
